FAERS Safety Report 25577244 (Version 1)
Quarter: 2025Q3

REPORT INFORMATION
  Report Type: Spontaneous
  Country: EU (occurrence: EU)
  Receive Date: 20250718
  Receipt Date: 20250718
  Transmission Date: 20251021
  Serious: Yes (Other)
  Sender: FRESENIUS KABI
  Company Number: None

PATIENT
  Age: 54 Year
  Sex: Male

DRUGS (3)
  1. OXALIPLATIN [Suspect]
     Active Substance: OXALIPLATIN
     Indication: Rectal cancer
     Dosage: FOA-CONCENTRATE FOR SOLUTION FOR INFUSION?130MG/M2 EVERY 21 DAYS; 260MG ADMINISTERED ON 7 MAY 2025
     Route: 042
     Dates: start: 20250507
  2. OXALIPLATIN [Suspect]
     Active Substance: OXALIPLATIN
     Dosage: FOA-CONCENTRATE FOR SOLUTION FOR INFUSION?RESUMED ON JUNE 4TH,TOOK OXALIPLATIN WITH DOSE REDUCTION (
     Route: 042
     Dates: start: 20250604
  3. CAPECITABINE [Concomitant]
     Active Substance: CAPECITABINE
     Indication: Rectal cancer
     Route: 048

REACTIONS (2)
  - Hepatitis acute [Recovering/Resolving]
  - Alanine aminotransferase increased [Recovering/Resolving]

NARRATIVE: CASE EVENT DATE: 20250527
